FAERS Safety Report 8077005-5 (Version None)
Quarter: 2012Q1

REPORT INFORMATION
  Report Type: 
  Country: None (occurrence: None)
  Receive Date: 20120127
  Receipt Date: 20120117
  Transmission Date: 20120608
  Serious: Yes (Other)
  Sender: FDA-Public Use
  Company Number: DE-GLAXOSMITHKLINE-B0777636A

PATIENT
  Sex: Female
  Weight: 66 kg

DRUGS (5)
  1. LAPATINIB [Suspect]
     Indication: BREAST CANCER
     Dosage: 750MG PER DAY
     Route: 048
     Dates: start: 20111129
  2. DOXORUBICIN HCL [Suspect]
     Indication: BREAST CANCER
     Dosage: 35MG WEEKLY
     Route: 042
     Dates: start: 20111129
  3. PACLITAXEL [Suspect]
     Indication: BREAST CANCER
     Dosage: 140MG WEEKLY
     Route: 042
     Dates: start: 20111129
  4. CARBOPLATIN [Suspect]
     Indication: BREAST CANCER
     Dosage: 300MG WEEKLY
     Route: 042
     Dates: start: 20111129
  5. HERCEPTIN [Suspect]
     Indication: BREAST CANCER
     Dosage: 400MG EVERY 3 WEEKS
     Route: 042
     Dates: start: 20111129

REACTIONS (1)
  - NEUTROPENIA [None]
